FAERS Safety Report 4582526-3 (Version None)
Quarter: 2005Q1

REPORT INFORMATION
  Report Type: 
  Country: None (occurrence: None)
  Receive Date: 20050211
  Receipt Date: 20050211
  Transmission Date: 20050727
  Serious: Yes (Life-Threatening)
  Sender: FDA-Public Use
  Company Number: None

PATIENT
  Age: 68 Year
  Sex: Male
  Weight: 106.5953 kg

DRUGS (7)
  1. CARBOPLATIN [Suspect]
     Indication: OESOPHAGEAL CARCINOMA
     Dosage: 500 MG Q3WK PIV
     Route: 042
     Dates: start: 20050127
  2. TAXOL.CARBOPLATIN [Concomitant]
  3. ALOXID [Concomitant]
  4. DECADRON [Concomitant]
  5. ZANTAC [Concomitant]
  6. BENADRYL [Concomitant]
  7. ATIVAN [Concomitant]

REACTIONS (3)
  - DYSPNOEA [None]
  - FLUSHING [None]
  - INFUSION RELATED REACTION [None]
